FAERS Safety Report 26202711 (Version 1)
Quarter: 2025Q4

REPORT INFORMATION
  Report Type: Spontaneous
  Country: EU (occurrence: EU)
  Receive Date: 20251226
  Receipt Date: 20251226
  Transmission Date: 20260118
  Serious: Yes (Other)
  Sender: ROCHE
  Company Number: EU-ROCHE-10000407554

PATIENT
  Age: 81 Year
  Sex: Female
  Weight: 39 kg

DRUGS (8)
  1. TOCILIZUMAB [Suspect]
     Active Substance: TOCILIZUMAB
     Indication: Giant cell arteritis
     Dosage: 162/0.9 ML
     Route: 058
     Dates: start: 20250927
  2. TOCILIZUMAB [Suspect]
     Active Substance: TOCILIZUMAB
     Indication: Autoimmune thyroiditis
     Route: 058
  3. TOCILIZUMAB [Suspect]
     Active Substance: TOCILIZUMAB
     Route: 058
  4. PREDNISOLONE [Concomitant]
     Active Substance: PREDNISOLONE
     Indication: Product used for unknown indication
     Dates: start: 20250731
  5. PERIACTIN [Concomitant]
     Active Substance: CYPROHEPTADINE HYDROCHLORIDE
  6. LANSOPRAZOLE [Concomitant]
     Active Substance: LANSOPRAZOLE
  7. POLYSORBATE 80 [Concomitant]
     Active Substance: POLYSORBATE 80
  8. PRAZEPAM [Concomitant]
     Active Substance: PRAZEPAM

REACTIONS (26)
  - Wrong technique in product usage process [Unknown]
  - Injection site pain [Recovered/Resolved]
  - Malaise [Recovered/Resolved]
  - Musculoskeletal chest pain [Not Recovered/Not Resolved]
  - Decreased appetite [Not Recovered/Not Resolved]
  - Headache [Recovered/Resolved]
  - Dyspepsia [Not Recovered/Not Resolved]
  - Visual acuity reduced [Unknown]
  - Liver disorder [Not Recovered/Not Resolved]
  - Weight decreased [Not Recovered/Not Resolved]
  - Dyspnoea [Unknown]
  - Sense of oppression [Recovered/Resolved]
  - Throat irritation [Unknown]
  - Productive cough [Unknown]
  - Nasopharyngitis [Unknown]
  - Pyrexia [Unknown]
  - Contusion [Unknown]
  - Fatigue [Unknown]
  - Haemorrhoids [Unknown]
  - White blood cell count decreased [Unknown]
  - Anxiety [Unknown]
  - Immunodeficiency [Unknown]
  - Hepatic function abnormal [Unknown]
  - Speech disorder [Unknown]
  - Intentional product use issue [Unknown]
  - Orthostatic hypotension [Unknown]

NARRATIVE: CASE EVENT DATE: 20250927
